FAERS Safety Report 23788690 (Version 1)
Quarter: 2024Q2

REPORT INFORMATION
  Report Type: Spontaneous
  Country: GB (occurrence: GB)
  Receive Date: 20240426
  Receipt Date: 20240426
  Transmission Date: 20240716
  Serious: Yes (Other)
  Sender: FDA-Public Use
  Company Number: None

PATIENT
  Age: 63 Year
  Sex: Female
  Weight: 70 kg

DRUGS (24)
  1. DOXYCYCLINE [Suspect]
     Active Substance: DOXYCYCLINE
     Dosage: TWO NOW THEN ONE DAILY
     Route: 065
     Dates: start: 20240407
  2. MIRABEGRON [Concomitant]
     Active Substance: MIRABEGRON
     Dates: start: 20231130
  3. PREGABALIN [Concomitant]
     Active Substance: PREGABALIN
     Dates: start: 20231130
  4. FAMOTIDINE [Concomitant]
     Active Substance: FAMOTIDINE
     Dosage: DURATION: 28 DAYS
     Dates: start: 20240131, end: 20240228
  5. ZOPICLONE [Concomitant]
     Active Substance: ZOPICLONE
     Dosage: TIME INTERVAL: AS NECESSARY: AT NIGHT, DURATION: 14 DAYS
     Dates: start: 20240131, end: 20240214
  6. FIASP [Concomitant]
     Active Substance: INSULIN ASPART
     Dosage: USE AS DIRECTED
     Dates: start: 20231130
  7. TOLTERODINE [Concomitant]
     Active Substance: TOLTERODINE
     Dates: start: 20231130
  8. ALBUTEROL [Concomitant]
     Active Substance: ALBUTEROL
     Dosage: TIME INTERVAL: AS NECESSARY
     Dates: start: 20240407
  9. LANSOPRAZOLE [Concomitant]
     Active Substance: LANSOPRAZOLE
     Dates: start: 20231130
  10. CLARITHROMYCIN [Concomitant]
     Active Substance: CLARITHROMYCIN
  11. MORPHINE SULFATE [Concomitant]
     Active Substance: MORPHINE SULFATE
     Dosage: TIME INTERVAL: AS NECESSARY: 10- 20 MGS  4 HOURLY ( MAX 80MG/DAY PRN)
     Dates: start: 20231130
  12. ROPINIROLE [Concomitant]
     Active Substance: ROPINIROLE
     Dosage: AT NIGHT
     Dates: start: 20231130
  13. MORPHINE SULFATE [Concomitant]
     Active Substance: MORPHINE SULFATE
     Dosage: TAKE ONE EVERY 12 HOURS (TOTAL 70 MG )
     Dates: start: 20231130
  14. POLYETHYLENE GLYCOL 3350\POTASSIUM CHLORIDE\SODIUM BICARBONATE\SODIUM [Concomitant]
     Active Substance: POLYETHYLENE GLYCOL 3350\POTASSIUM CHLORIDE\SODIUM BICARBONATE\SODIUM CHLORIDE
     Dosage: ONE OR TWO A DAY
     Dates: start: 20240207
  15. CALCIUM CARBONATE\CHOLECALCIFEROL [Concomitant]
     Active Substance: CALCIUM CARBONATE\CHOLECALCIFEROL
     Dates: start: 20231130
  16. ATORVASTATIN [Concomitant]
     Active Substance: ATORVASTATIN
     Dates: start: 20231130
  17. BISACODYL [Concomitant]
     Active Substance: BISACODYL
     Dosage: TAKE ONE OR TWO AT NIGHT
     Dates: start: 20231130
  18. BISOPROLOL [Concomitant]
     Active Substance: BISOPROLOL\BISOPROLOL FUMARATE
     Dates: start: 20231130
  19. TRESIBA [Concomitant]
     Active Substance: INSULIN DEGLUDEC
     Dates: start: 20231130
  20. ASPIRIN [Concomitant]
     Active Substance: ASPIRIN
     Dates: start: 20231130
  21. LEVOTHYROXINE [Concomitant]
     Active Substance: LEVOTHYROXINE\LEVOTHYROXINE SODIUM
     Dates: start: 20231130
  22. SERTRALINE [Concomitant]
     Active Substance: SERTRALINE HYDROCHLORIDE
     Dates: start: 20231130
  23. UNSPECIFIED INGREDIENT [Concomitant]
     Active Substance: UNSPECIFIED INGREDIENT
     Dosage: USE AS DIRECTED
     Dates: start: 20231130
  24. CREON [Concomitant]
     Active Substance: PANCRELIPASE AMYLASE\PANCRELIPASE LIPASE\PANCRELIPASE PROTEASE
     Dosage: BEFORE FOOD
     Dates: start: 20240212

REACTIONS (1)
  - Gastrooesophageal reflux disease [Recovered/Resolved]
